FAERS Safety Report 4516848-9 (Version None)
Quarter: 2004Q4

REPORT INFORMATION
  Report Type: 
  Country: None (occurrence: None)
  Receive Date: 20041202
  Receipt Date: 20041123
  Transmission Date: 20050328
  Serious: Yes (Death)
  Sender: FDA-Public Use
  Company Number: GB-GLAXOSMITHKLINE-B0357911A

PATIENT
  Age: 72 Year
  Weight: 75 kg

DRUGS (4)
  1. CHLORAMBUCIL [Suspect]
     Dosage: 2MG UNKNOWN
     Route: 048
     Dates: start: 20031201, end: 20040601
  2. AMOXICILLIN [Concomitant]
     Indication: LOWER RESPIRATORY TRACT INFECTION
     Dosage: 500MG PER DAY
     Route: 048
     Dates: start: 20040301, end: 20040710
  3. VIGAM [Concomitant]
     Dosage: 30G MONTHLY
     Route: 042
  4. TIMOLOL MALEATE [Concomitant]
     Indication: GLAUCOMA
     Dosage: 2DROP TWICE PER DAY
     Route: 047

REACTIONS (6)
  - ANOREXIA [None]
  - ASCITES [None]
  - HEPATITIS CHOLESTATIC [None]
  - JAUNDICE [None]
  - LETHARGY [None]
  - LIVER FUNCTION TEST ABNORMAL [None]
